FAERS Safety Report 24354605 (Version 1)
Quarter: 2024Q3

REPORT INFORMATION
  Report Type: Spontaneous
  Country: NL (occurrence: NL)
  Receive Date: 20240923
  Receipt Date: 20240923
  Transmission Date: 20241017
  Serious: Yes (Other)
  Sender: TEVA
  Company Number: None

PATIENT
  Age: 77 Year
  Sex: Female
  Weight: 75 kg

DRUGS (1)
  1. OMEPRAZOLE [Suspect]
     Active Substance: OMEPRAZOLE
     Indication: Product used for unknown indication
     Dosage: TAKE 1 CAPSULE ONCE A DAY WITH PLENTY OF WATER OR APPLESAUCE, DO NOT CHEW IT, ;  OMEPRAZOL TEVA MSR
     Route: 065
     Dates: start: 20240815, end: 20240902

REACTIONS (3)
  - Dementia [Unknown]
  - Aggression [Unknown]
  - Suspiciousness [Unknown]
